FAERS Safety Report 6213844-0 (Version None)
Quarter: 2009Q2

REPORT INFORMATION
  Report Type: 
  Country: None (occurrence: None)
  Receive Date: 20090601
  Receipt Date: 20090601
  Transmission Date: 20091009
  Serious: Yes (Life-Threatening)
  Sender: FDA-Public Use
  Company Number: None

PATIENT
  Age: 61 Year
  Sex: Male
  Weight: 81 kg

DRUGS (4)
  1. SUCCINYLCHOLINE CHLORIDE [Suspect]
     Indication: ENDOTRACHEAL INTUBATION
     Dosage: NOT DOCUMENTED ONCE IV BOLUS
     Route: 040
  2. FENTANYL [Concomitant]
  3. PROPOFOL [Concomitant]
  4. ANCEF [Concomitant]

REACTIONS (1)
  - ANAPHYLACTIC REACTION [None]
